FAERS Safety Report 5233350-X (Version None)
Quarter: 2007Q1

REPORT INFORMATION
  Report Type: 
  Country: None (occurrence: None)
  Receive Date: 20070206
  Receipt Date: 20070206
  Transmission Date: 20070707
  Serious: Yes (Other)
  Sender: FDA-Public Use
  Company Number: None

PATIENT
  Age: 50 Year
  Sex: Female
  Weight: 77.1115 kg

DRUGS (4)
  1. QUASENSE [Suspect]
     Indication: HAEMORRHAGE
     Dosage: ONE   DAILY X EVERY DAY  PO
     Route: 048
     Dates: start: 20061201, end: 20070131
  2. QUASENSE [Suspect]
     Indication: MUSCLE SPASMS
     Dosage: ONE   DAILY X EVERY DAY  PO
     Route: 048
     Dates: start: 20061201, end: 20070131
  3. SEASONALE [Suspect]
     Indication: HAEMORRHAGE
     Dosage: ONE   DAILY X EVERY DAY  PO
     Route: 048
  4. SEASONALE [Suspect]
     Indication: MUSCLE SPASMS
     Dosage: ONE   DAILY X EVERY DAY  PO
     Route: 048

REACTIONS (3)
  - METRORRHAGIA [None]
  - MUSCLE SPASMS [None]
  - THERAPEUTIC RESPONSE UNEXPECTED WITH DRUG SUBSTITUTION [None]
